FAERS Safety Report 8336639-0 (Version None)
Quarter: 2012Q2

REPORT INFORMATION
  Report Type: 
  Country: None (occurrence: None)
  Receive Date: 20120504
  Receipt Date: 20120424
  Transmission Date: 20120825
  Serious: Yes (Death)
  Sender: FDA-Public Use
  Company Number: JP-GENZYME-THYM-1003026

PATIENT
  Sex: Female
  Weight: 59 kg

DRUGS (4)
  1. CYCLOSPORINE [Concomitant]
     Indication: APLASTIC ANAEMIA
     Dosage: UNK
     Dates: start: 20110516, end: 20110705
  2. METENOLONE ACETATE [Concomitant]
     Indication: APLASTIC ANAEMIA
     Dosage: UNK
     Dates: start: 20110516, end: 20110705
  3. THYMOGLOBULIN [Suspect]
     Indication: APLASTIC ANAEMIA
     Dosage: 220 MG, QD
     Route: 042
     Dates: start: 20110516, end: 20110520
  4. METHYLPREDNISOLONE SODIUM SUCCINATE [Concomitant]
     Indication: PREMEDICATION
     Dosage: UNK
     Dates: start: 20110516, end: 20110610

REACTIONS (3)
  - ANAL HAEMORRHAGE [None]
  - APLASTIC ANAEMIA [None]
  - OTITIS MEDIA [None]
